FAERS Safety Report 24606895 (Version 2)
Quarter: 2024Q4

REPORT INFORMATION
  Report Type: Report from Study
  Country: US (occurrence: US)
  Receive Date: 20241112
  Receipt Date: 20241218
  Transmission Date: 20250115
  Serious: No
  Sender: SAGE
  Company Number: US-SAGE-2024SAGE000108

PATIENT
  Sex: Female

DRUGS (2)
  1. ZULRESSO [Suspect]
     Active Substance: BREXANOLONE
     Indication: Perinatal depression
     Dosage: UNK
     Route: 042
     Dates: start: 20231212, end: 20231214
  2. ZULRESSO [Suspect]
     Active Substance: BREXANOLONE
     Dosage: FINAL BAG
     Route: 042
     Dates: start: 20231214, end: 20231215

REACTIONS (2)
  - Drug monitoring procedure incorrectly performed [Unknown]
  - Incorrect product administration duration [Unknown]

NARRATIVE: CASE EVENT DATE: 20231212
